FAERS Safety Report 8933910 (Version 1)
Quarter: 2012Q4

REPORT INFORMATION
  Report Type: 
  Country: JP (occurrence: JP)
  Receive Date: 20121129
  Receipt Date: 20121129
  Transmission Date: 20130627
  Serious: Yes (Hospitalization, Disabling)
  Sender: FDA-Public Use
  Company Number: JP-B.I. PHARMACEUTICALS,INC./RIDGEFIELD-2012-BP-25683NB

PATIENT
  Age: 73 Year
  Sex: Male

DRUGS (11)
  1. SIFROL [Suspect]
     Indication: PARKINSON^S DISEASE
     Dosage: 1.5 mg
     Route: 048
     Dates: start: 2011
  2. SIFROL [Suspect]
     Dosage: 3 mg
     Route: 048
     Dates: start: 20120514, end: 20121018
  3. SIFROL [Suspect]
     Dosage: 1 mg
     Route: 048
     Dates: start: 20121018
  4. MENESIT [Concomitant]
     Indication: PARKINSON^S DISEASE
     Dosage: 300 mg
     Route: 065
     Dates: start: 2011
  5. MENESIT [Concomitant]
     Dosage: 450 mg
     Route: 065
     Dates: start: 20120514
  6. FP [Concomitant]
     Indication: PARKINSON^S DISEASE
     Dosage: 2.5 mg
     Route: 065
     Dates: start: 2011, end: 20121018
  7. LASIX [Concomitant]
     Route: 065
     Dates: start: 20100807
  8. OMEPRAL [Concomitant]
     Route: 065
     Dates: start: 20100807
  9. BAYASPIRIN [Concomitant]
     Route: 065
     Dates: start: 20100807
  10. PLAVIX [Concomitant]
     Route: 065
     Dates: start: 20100807
  11. SIGMART [Concomitant]
     Route: 065
     Dates: start: 20100807

REACTIONS (2)
  - Orthostatic hypotension [Not Recovered/Not Resolved]
  - Dyslalia [Unknown]
